FAERS Safety Report 23398841 (Version 5)
Quarter: 2025Q2

REPORT INFORMATION
  Report Type: Report from Study
  Country: CO (occurrence: CO)
  Receive Date: 20240112
  Receipt Date: 20250519
  Transmission Date: 20250716
  Serious: Yes (Other)
  Sender: ABBVIE
  Company Number: CO-ABBVIE-5582967

PATIENT
  Age: 49 Year
  Sex: Male
  Weight: 81 kg

DRUGS (6)
  1. SKYRIZI [Suspect]
     Active Substance: RISANKIZUMAB-RZAA
     Indication: Psoriasis
     Dosage: FORM STRENGTH 75 MILLIGRAM?DOSE FORM- SOLUTION FOR INJECTION IN PRE-FILLED SYRINGE
     Route: 058
     Dates: start: 20220211, end: 20240925
  2. EMPAGLIFLOZIN\METFORMIN HYDROCHLORIDE [Concomitant]
     Active Substance: EMPAGLIFLOZIN\METFORMIN HYDROCHLORIDE
     Indication: Diabetes mellitus
     Dosage: START DATE TEXT: BEFORE SKYRIZI
     Route: 048
  3. Rosuvastatine/ezetimibe [Concomitant]
     Indication: Blood triglycerides
     Dosage: STARTED BEFORE SKYRIZI
     Route: 048
  4. LOSARTAN [Concomitant]
     Active Substance: LOSARTAN
     Indication: Hypertension
     Route: 048
  5. LOSARTAN [Concomitant]
     Active Substance: LOSARTAN
     Indication: Hypertension
     Route: 048
  6. AMLODIPINE\HYDROCHLOROTHIAZIDE\VALSARTAN [Concomitant]
     Active Substance: AMLODIPINE\HYDROCHLOROTHIAZIDE\VALSARTAN
     Indication: Hypertension
     Dosage: START DATE TEXT: BEFORE SKYRIZI
     Route: 048

REACTIONS (3)
  - Tendon rupture [Not Recovered/Not Resolved]
  - Osteonecrosis [Recovering/Resolving]
  - Osteochondroma [Unknown]

NARRATIVE: CASE EVENT DATE: 20230101
